FAERS Safety Report 7312510-8 (Version None)
Quarter: 2011Q1

REPORT INFORMATION
  Report Type: 
  Country: None (occurrence: None)
  Receive Date: 20110224
  Receipt Date: 20110209
  Transmission Date: 20110831
  Serious: Yes (Death)
  Sender: FDA-Public Use
  Company Number: FR-PFIZER INC-FR-WYE-H12715509

PATIENT
  Age: 74 Year
  Sex: Female

DRUGS (6)
  1. STABLON [Suspect]
     Dosage: UNKNOWN
     Route: 048
  2. LYRICA [Suspect]
     Dosage: UNKNOWN
     Route: 065
  3. FOSFOMYCIN [Suspect]
     Dosage: UNKNOWN
     Route: 042
  4. PREVISCAN [Suspect]
     Dosage: UNKNOWN
     Route: 048
  5. FUCIDINE CAP [Suspect]
     Dosage: UNKNOWN
     Route: 042
  6. INIPOMP [Suspect]
     Dosage: UNKNOWN
     Route: 048

REACTIONS (2)
  - AGRANULOCYTOSIS [None]
  - SEPTIC SHOCK [None]
